FAERS Safety Report 8848186 (Version 1)
Quarter: 2012Q4

REPORT INFORMATION
  Report Type: 
  Country: NL (occurrence: NL)
  Receive Date: 20121018
  Receipt Date: 20121018
  Transmission Date: 20130627
  Serious: Yes (Hospitalization, Other)
  Sender: FDA-Public Use
  Company Number: NL-PFIZER INC-2012254578

PATIENT
  Age: 66 Year
  Sex: Male
  Weight: 91.5 kg

DRUGS (1)
  1. GENOTROPIN [Suspect]
     Dosage: 0.6 mg, 7/wk
     Route: 058
     Dates: start: 20060612

REACTIONS (1)
  - Cerebral haemorrhage [Unknown]
